FAERS Safety Report 24670925 (Version 1)
Quarter: 2024Q4

REPORT INFORMATION
  Report Type: Spontaneous
  Country: US (occurrence: US)
  Receive Date: 20241127
  Receipt Date: 20241127
  Transmission Date: 20250115
  Serious: Yes (Other)
  Sender: FRESENIUS KABI
  Company Number: US-FreseniusKabi-FK202417541

PATIENT
  Age: 64 Year
  Sex: Female

DRUGS (4)
  1. OXALIPLATIN [Suspect]
     Active Substance: OXALIPLATIN
     Indication: Colon cancer stage II
     Dosage: FORM OF ADMINISTRATION: INFUSION?6 MONTHS?FOLFOX
  2. BEVACIZUMAB [Suspect]
     Active Substance: BEVACIZUMAB
     Indication: Colon cancer stage II
     Dosage: 6 MONTHS?FOLFOX
  3. LEUCOVORIN [Concomitant]
     Active Substance: LEUCOVORIN\LEUCOVORIN CALCIUM
     Indication: Colon cancer stage II
     Dosage: 6 MONTHS?FOLFOX
  4. FLUOROURACIL [Concomitant]
     Active Substance: FLUOROURACIL
     Indication: Colon cancer stage II
     Dosage: 6 MONTHS?FOLFOX

REACTIONS (2)
  - Acute kidney injury [Recovering/Resolving]
  - Thrombotic microangiopathy [Recovering/Resolving]
